FAERS Safety Report 7749989-3 (Version None)
Quarter: 2011Q3

REPORT INFORMATION
  Report Type: 
  Country: None (occurrence: None)
  Receive Date: 20110825
  Receipt Date: 20110504
  Transmission Date: 20111222
  Serious: No
  Sender: FDA-Public Use
  Company Number: 327664

PATIENT
  Age: 77 Year
  Sex: Female

DRUGS (3)
  1. ASPIRIN [Concomitant]
  2. VICTOZA [Suspect]
     Indication: TYPE 2 DIABETES MELLITUS
     Dosage: 0.6 MG, QD, SUBCUTANEOUS ; 1.2 MG, QD
     Route: 058
     Dates: start: 20110408
  3. PLAVIX [Concomitant]

REACTIONS (1)
  - INJECTION SITE HAEMATOMA [None]
